FAERS Safety Report 12133030 (Version 2)
Quarter: 2016Q2

REPORT INFORMATION
  Report Type: Report from Study
  Country: NL (occurrence: NL)
  Receive Date: 20160301
  Receipt Date: 20160503
  Transmission Date: 20160815
  Serious: Yes (Other)
  Sender: FDA-Public Use
  Company Number: NL-AMGEN-NLDSL2016023223

PATIENT
  Sex: Female

DRUGS (10)
  1. CALCIUM CARBONATE. [Concomitant]
     Active Substance: CALCIUM CARBONATE
     Dosage: 1.25 G, QD
     Dates: start: 20150612
  2. EVEROLIMUS [Concomitant]
     Active Substance: EVEROLIMUS
     Dosage: 10 MG, QD
     Dates: start: 20150625
  3. PANTOPRAZOLE [Concomitant]
     Active Substance: PANTOPRAZOLE SODIUM
     Dosage: 40 MG, QD
     Dates: start: 20160217
  4. XGEVA [Suspect]
     Active Substance: DENOSUMAB
     Indication: PRODUCT USED FOR UNKNOWN INDICATION
     Dosage: 120 MG, Q4WK
     Route: 058
     Dates: start: 20150612
  5. XGEVA [Suspect]
     Active Substance: DENOSUMAB
     Dosage: 70 MG/ML 1.70 ML, UNK
     Route: 058
  6. LYMPHOMYOSOT [Concomitant]
     Dosage: UNK
     Dates: start: 20100518
  7. HYDROCHLOORTHIAZIDE [Concomitant]
     Active Substance: HYDROCHLOROTHIAZIDE
     Dosage: 12.5 MG, QD
     Dates: start: 20100518
  8. TAMOXIFEN [Concomitant]
     Active Substance: TAMOXIFEN
     Dosage: 20 MG, QD
     Dates: start: 20130116
  9. EXEMESTAAN [Concomitant]
     Active Substance: EXEMESTANE
     Dosage: 25 MG, QD
     Dates: start: 20150625
  10. METOPROLOL. [Concomitant]
     Active Substance: METOPROLOL
     Dosage: 100 MG, QD
     Dates: start: 20100518

REACTIONS (2)
  - Tooth fracture [Unknown]
  - Gastric disorder [Recovering/Resolving]
